FAERS Safety Report 5325931-X (Version None)
Quarter: 2007Q2

REPORT INFORMATION
  Report Type: 
  Country: None (occurrence: None)
  Receive Date: 20070516
  Receipt Date: 20070510
  Transmission Date: 20071010
  Serious: Yes (Hospitalization)
  Sender: FDA-Public Use
  Company Number: PHEH2007US03986

PATIENT
  Age: 38 Year
  Sex: Female

DRUGS (8)
  1. ZELNORM [Suspect]
     Indication: IRRITABLE BOWEL SYNDROME
     Dosage: 6 MG, BID
     Route: 048
     Dates: start: 20070316, end: 20070330
  2. ANTIHYPERTENSIVE DRUGS [Concomitant]
  3. NORVASC [Concomitant]
     Indication: HYPERTENSION
     Dosage: 10 MG, UNK
  4. ACCUPRIL [Concomitant]
     Indication: HYPERTENSION
  5. PREMARIN [Concomitant]
  6. PHENERGAN ^AVENTIS PHARMA^ [Concomitant]
     Indication: NAUSEA
     Dosage: 25 MG, UNK
  7. VERPAMIL [Concomitant]
     Indication: HYPERTENSION
  8. ADVAIR DISKUS 100/50 [Concomitant]

REACTIONS (5)
  - CHEST PAIN [None]
  - DYSPNOEA [None]
  - HYPERTENSION [None]
  - INFLUENZA SEROLOGY POSITIVE [None]
  - TACHYCARDIA [None]
